FAERS Safety Report 7832491-8 (Version None)
Quarter: 2011Q4

REPORT INFORMATION
  Report Type: 
  Country: None (occurrence: None)
  Receive Date: 20111023
  Receipt Date: 20111010
  Transmission Date: 20120403
  Serious: Yes (Hospitalization, Other)
  Sender: FDA-Public Use
  Company Number: US-ELI_LILLY_AND_COMPANY-US201105001485

PATIENT
  Sex: Female
  Weight: 50 kg

DRUGS (7)
  1. FORTEO [Suspect]
     Indication: OSTEOPOROSIS
     Dosage: 20 UG, QD
     Route: 065
     Dates: start: 20110330
  2. FORTEO [Suspect]
     Dosage: 20 UG, QD
  3. METHOTREXATE [Concomitant]
  4. FORTEO [Suspect]
     Dosage: 20 UG, QD
  5. FORTEO [Suspect]
     Dosage: 20 UG, QD
  6. FOLIC ACID [Concomitant]
  7. REMICADE [Concomitant]

REACTIONS (3)
  - RHEUMATOID ARTHRITIS [None]
  - HEADACHE [None]
  - HYPOTENSION [None]
